FAERS Safety Report 5723354-2 (Version None)
Quarter: 2008Q2

REPORT INFORMATION
  Report Type: 
  Country: None (occurrence: None)
  Receive Date: 20080429
  Receipt Date: 20080429
  Transmission Date: 20081010
  Serious: No
  Sender: FDA-Public Use
  Company Number: None

PATIENT
  Age: 67 Year
  Sex: Female
  Weight: 57.6068 kg

DRUGS (3)
  1. LEVOTHYROXINE SODIUM [Suspect]
     Indication: HYPOTHYROIDISM
     Dosage: .125 MG/DAY 4 DAYS PO
     Route: 048
     Dates: start: 20080307, end: 20080417
  2. LEVOTHYROXINE SODIUM [Suspect]
  3. LEVOTHYROXINE SODIUM [Suspect]
     Indication: HYPOTHYROIDISM
     Dosage: .112 MG/DAY 3 DAYS PO
     Route: 048
     Dates: start: 20080307, end: 20080417

REACTIONS (3)
  - BLOOD THYROID STIMULATING HORMONE ABNORMAL [None]
  - PHARMACEUTICAL PRODUCT COMPLAINT [None]
  - THERAPEUTIC RESPONSE DECREASED [None]
